FAERS Safety Report 18250150 (Version 1)
Quarter: 2020Q3

REPORT INFORMATION
  Report Type: Spontaneous
  Country: US (occurrence: US)
  Receive Date: 20200909
  Receipt Date: 20200909
  Transmission Date: 20201103
  Serious: No
  Sender: FDA-Public Use
  Company Number: US-ASTRAZENECA-2020SF02733

PATIENT
  Sex: Female
  Weight: 63.5 kg

DRUGS (2)
  1. AVASTIN [Concomitant]
     Active Substance: BEVACIZUMAB
     Indication: CHEMOTHERAPY
     Dosage: UNKNOWN
     Route: 065
  2. LYNPARZA [Suspect]
     Active Substance: OLAPARIB
     Indication: OVARIAN CANCER
     Route: 048
     Dates: start: 20200702

REACTIONS (3)
  - Joint stiffness [Unknown]
  - Abdominal pain [Not Recovered/Not Resolved]
  - Pain [Unknown]
